FAERS Safety Report 24415868 (Version 1)
Quarter: 2024Q4

REPORT INFORMATION
  Report Type: Spontaneous
  Country: US (occurrence: US)
  Receive Date: 20241009
  Receipt Date: 20241009
  Transmission Date: 20250115
  Serious: Yes (Hospitalization)
  Sender: MYLAN
  Company Number: US-MYLANLABS-2024M1091178

PATIENT
  Age: 78 Year
  Sex: Female

DRUGS (2)
  1. BUDESONIDE [Suspect]
     Active Substance: BUDESONIDE
     Indication: Colitis microscopic
     Dosage: UNK
     Route: 048
  2. IMODIUM [Suspect]
     Active Substance: LOPERAMIDE HYDROCHLORIDE
     Indication: Colitis microscopic
     Dosage: UNK
     Route: 048

REACTIONS (3)
  - Hypovolaemic shock [Recovering/Resolving]
  - Pseudomembranous colitis [Recovering/Resolving]
  - Drug ineffective [Unknown]
